FAERS Safety Report 25052309 (Version 4)
Quarter: 2025Q2

REPORT INFORMATION
  Report Type: Spontaneous
  Country: FR (occurrence: FR)
  Receive Date: 20250307
  Receipt Date: 20250514
  Transmission Date: 20250717
  Serious: Yes (Other)
  Sender: PFIZER
  Company Number: FR-JNJFOC-20250115618

PATIENT
  Sex: Male

DRUGS (7)
  1. CARBOPLATIN [Suspect]
     Active Substance: CARBOPLATIN
     Indication: Non-small cell lung cancer metastatic
     Dates: end: 20241113
  2. CARBOPLATIN [Suspect]
     Active Substance: CARBOPLATIN
     Dates: end: 20241125
  3. PEMETREXED [Suspect]
     Active Substance: PEMETREXED
     Indication: Non-small cell lung cancer metastatic
  4. PEMETREXED [Suspect]
     Active Substance: PEMETREXED
  5. PEMETREXED [Suspect]
     Active Substance: PEMETREXED
  6. AMIVANTAMAB [Suspect]
     Active Substance: AMIVANTAMAB
     Indication: Non-small cell lung cancer metastatic
     Dates: start: 202409
  7. AMIVANTAMAB [Suspect]
     Active Substance: AMIVANTAMAB
     Dates: start: 20241204, end: 20250223

REACTIONS (3)
  - Tubulointerstitial nephritis [Unknown]
  - Papilloedema [Unknown]
  - Off label use [Unknown]

NARRATIVE: CASE EVENT DATE: 20250127
